FAERS Safety Report 18510402 (Version 1)
Quarter: 2020Q4

REPORT INFORMATION
  Report Type: Spontaneous
  Country: US (occurrence: US)
  Receive Date: 20201116
  Receipt Date: 20201116
  Transmission Date: 20210114
  Serious: No
  Sender: FDA-Public Use
  Company Number: None

PATIENT
  Sex: Male

DRUGS (4)
  1. BENZEPRO 6% CLOTH [Concomitant]
  2. TAZAROTENE 0.1% CREAM [Concomitant]
  3. DOXYCYCLINE MONOHYDRATE [Suspect]
     Active Substance: DOXYCYCLINE
  4. SULFACLEANSE 8%/4% [Concomitant]

REACTIONS (6)
  - Pain of skin [None]
  - Abdominal discomfort [None]
  - Burning sensation [None]
  - Rash [None]
  - Skin exfoliation [None]
  - Pruritus [None]
